FAERS Safety Report 9254772 (Version 1)
Quarter: 2013Q2

REPORT INFORMATION
  Report Type: Spontaneous
  Country: DK (occurrence: DK)
  Receive Date: 20130425
  Receipt Date: 20130425
  Transmission Date: 20140414
  Serious: Yes (Hospitalization)
  Sender: FDA-Public Use
  Company Number: DK-PERRIGO-13DK004026

PATIENT
  Age: 74 Year
  Sex: Male

DRUGS (2)
  1. IBUPROFEN 200 MG 604 [Suspect]
     Indication: BACK PAIN
     Dosage: 400 MG, TID
     Route: 048
  2. WARFARIN [Suspect]
     Indication: ATRIAL FIBRILLATION
     Dosage: UNK, UNK
     Route: 048

REACTIONS (2)
  - International normalised ratio increased [Recovered/Resolved]
  - Drug interaction [Recovered/Resolved]
